FAERS Safety Report 11892447 (Version 6)
Quarter: 2016Q2

REPORT INFORMATION
  Report Type: Report from Study
  Country: CA (occurrence: CA)
  Receive Date: 20160106
  Receipt Date: 20160503
  Transmission Date: 20160815
  Serious: Yes (Other)
  Sender: FDA-Public Use
  Company Number: PHHY2015CA087022

PATIENT
  Age: 59 Year
  Sex: Female
  Weight: 43 kg

DRUGS (5)
  1. SANDOSTATIN LAR DEPOT [Suspect]
     Active Substance: OCTREOTIDE ACETATE
     Dosage: 30 MG, QMO, EVERY 4 WEEKS
     Route: 030
  2. NEUPOGEN [Concomitant]
     Active Substance: FILGRASTIM
     Indication: PRODUCT USED FOR UNKNOWN INDICATION
     Route: 058
  3. SANDOSTATIN [Suspect]
     Active Substance: OCTREOTIDE ACETATE
     Indication: PANCREATIC NEOPLASM
     Dosage: 100 UG, TID
     Route: 058
     Dates: start: 20150513, end: 20150710
  4. MORPHINE [Concomitant]
     Active Substance: MORPHINE
     Indication: PRODUCT USED FOR UNKNOWN INDICATION
     Route: 065
  5. SANDOSTATIN LAR DEPOT [Suspect]
     Active Substance: OCTREOTIDE ACETATE
     Indication: PANCREATIC NEOPLASM
     Dosage: 20 MG, QMO, EVERY 4 WEEKS
     Route: 030
     Dates: start: 20150618

REACTIONS (20)
  - Blood pressure systolic increased [Unknown]
  - Arthralgia [Recovered/Resolved]
  - Flatulence [Recovering/Resolving]
  - Product use issue [Unknown]
  - Hypoaesthesia [Unknown]
  - Fatigue [Unknown]
  - Mouth ulceration [Recovering/Resolving]
  - Abdominal rigidity [Unknown]
  - Diarrhoea [Recovering/Resolving]
  - Constipation [Unknown]
  - Ascites [Recovering/Resolving]
  - Tonsillar ulcer [Recovering/Resolving]
  - Platelet count decreased [Unknown]
  - Kidney enlargement [Unknown]
  - Haemoglobin decreased [Unknown]
  - Abdominal distension [Unknown]
  - Injection site pain [Recovering/Resolving]
  - Abdominal pain [Unknown]
  - Joint swelling [Unknown]
  - Peripheral swelling [Unknown]

NARRATIVE: CASE EVENT DATE: 20150513
